FAERS Safety Report 22041390 (Version 3)
Quarter: 2023Q1

REPORT INFORMATION
  Report Type: Spontaneous
  Country: US (occurrence: US)
  Receive Date: 20230227
  Receipt Date: 20230308
  Transmission Date: 20230417
  Serious: No
  Sender: FDA-Public Use
  Company Number: US-PFIZER INC-202300081173

PATIENT
  Sex: Female

DRUGS (1)
  1. RAPAMUNE [Interacting]
     Active Substance: SIROLIMUS
     Dosage: 1 MG/ML

REACTIONS (1)
  - Potentiating drug interaction [Unknown]
